FAERS Safety Report 9837544 (Version 1)
Quarter: 2013Q4

REPORT INFORMATION
  Report Type: Spontaneous
  Country: US (occurrence: None)
  Receive Date: 20131127
  Receipt Date: 20131127
  Transmission Date: 20140711
  Serious: No
  Sender: FDA-Public Use
  Company Number: 223882

PATIENT
  Age: 61 Year
  Sex: Male

DRUGS (4)
  1. PICATO [Suspect]
     Route: 061
     Dates: start: 20130906
  2. LIPITOR(ATORVASTATIN CALCIUM) [Concomitant]
  3. LISINOPRIL(LISINOPRIL) [Concomitant]
  4. COREG (CARVEDILOL) [Concomitant]

REACTIONS (3)
  - Application site pain [None]
  - Incorrect dose administered [None]
  - Inappropriate schedule of drug administration [None]
